FAERS Safety Report 16225030 (Version 5)
Quarter: 2020Q2

REPORT INFORMATION
  Report Type: Report from Study
  Country: CZ (occurrence: CZ)
  Receive Date: 20190422
  Receipt Date: 20200625
  Transmission Date: 20200713
  Serious: Yes (Hospitalization, Other)
  Sender: FDA-Public Use
  Company Number: CZ-INCYTE CORPORATION-2016IN005648

PATIENT

DRUGS (2)
  1. JAKAVI [Suspect]
     Active Substance: RUXOLITINIB
     Dosage: UNK
     Route: 065
     Dates: end: 20190531
  2. JAKAVI [Suspect]
     Active Substance: RUXOLITINIB
     Indication: THERAPEUTIC RESPONSE DECREASED
     Dosage: 20 MG, BID
     Route: 065
     Dates: start: 20150917

REACTIONS (11)
  - Fatigue [Not Recovered/Not Resolved]
  - Squamous cell carcinoma [Recovered/Resolved]
  - Weight decreased [Not Recovered/Not Resolved]
  - Anaemia [Not Recovered/Not Resolved]
  - Therapeutic response decreased [Not Recovered/Not Resolved]
  - Night sweats [Not Recovered/Not Resolved]
  - Infection [Recovering/Resolving]
  - Neoplasm [Recovered/Resolved]
  - Splenomegaly [Not Recovered/Not Resolved]
  - Neoplasm [Not Recovered/Not Resolved]
  - Thrombocytopenia [Not Recovered/Not Resolved]

NARRATIVE: CASE EVENT DATE: 20151112
